FAERS Safety Report 24382518 (Version 1)
Quarter: 2024Q4

REPORT INFORMATION
  Report Type: Spontaneous
  Country: US (occurrence: US)
  Receive Date: 20241001
  Receipt Date: 20241001
  Transmission Date: 20250114
  Serious: No
  Sender: SPARK THERAPEUTICS
  Company Number: US-SPARK THERAPEUTICS INC.-US-SPK-23-00089

PATIENT
  Age: 22 Year
  Sex: Female

DRUGS (4)
  1. LUXTURNA [Suspect]
     Active Substance: VORETIGENE NEPARVOVEC-RZYL
     Indication: Product used for unknown indication
     Dosage: UNK, SINGLE, LEFT EYE
     Dates: start: 20230112, end: 20230112
  2. LUXTURNA [Suspect]
     Active Substance: VORETIGENE NEPARVOVEC-RZYL
     Dosage: UNK, SINGLE, RIGHT EYE
     Dates: start: 20230119, end: 20230119
  3. LUXTURNA [Suspect]
     Active Substance: VORETIGENE NEPARVOVEC-RZYL
     Indication: Product used for unknown indication
     Dosage: UNK, LEFT EYE
     Dates: start: 20230112, end: 20230112
  4. LUXTURNA [Suspect]
     Active Substance: VORETIGENE NEPARVOVEC-RZYL
     Dosage: UNK, RIGHT EYE
     Dates: start: 20230119, end: 20230119

REACTIONS (1)
  - Ocular hypertension [Unknown]

NARRATIVE: CASE EVENT DATE: 20230725
